FAERS Safety Report 6133315-X (Version None)
Quarter: 2009Q1

REPORT INFORMATION
  Report Type: 
  Country: None (occurrence: None)
  Receive Date: 20090325
  Receipt Date: 20090325
  Transmission Date: 20090719
  Serious: Yes (Hospitalization)
  Sender: FDA-Public Use
  Company Number: None

PATIENT
  Age: 87 Year
  Sex: Female
  Weight: 47.6277 kg

DRUGS (1)
  1. DIGITEK 250MCG RECEIVED FROM MEDCO [Suspect]
     Dosage: PO
     Route: 048
     Dates: start: 20070101, end: 20080501

REACTIONS (2)
  - BLOOD PRESSURE ABNORMAL [None]
  - TRANSIENT ISCHAEMIC ATTACK [None]
